FAERS Safety Report 26130842 (Version 1)
Quarter: 2025Q4

REPORT INFORMATION
  Report Type: Spontaneous
  Country: US (occurrence: None)
  Receive Date: 20251207
  Receipt Date: 20251207
  Transmission Date: 20260117
  Serious: No
  Sender: FDA-CTU
  Company Number: None

PATIENT
  Age: 50 Year
  Sex: Female
  Weight: 99 kg

DRUGS (1)
  1. CELECOXIB [Suspect]
     Active Substance: CELECOXIB

REACTIONS (1)
  - Drug dispensed to wrong patient [None]

NARRATIVE: CASE EVENT DATE: 20251206
